FAERS Safety Report 20012041 (Version 1)
Quarter: 2021Q4

REPORT INFORMATION
  Report Type: Spontaneous
  Country: FR (occurrence: FR)
  Receive Date: 20211029
  Receipt Date: 20211029
  Transmission Date: 20220303
  Serious: Yes (Death, Hospitalization, Other)
  Sender: FDA-Public Use
  Company Number: None

PATIENT
  Age: 19 Year
  Sex: Female

DRUGS (11)
  1. TRIMEPRAZINE [Suspect]
     Active Substance: TRIMEPRAZINE
     Indication: Psychiatric decompensation
     Route: 048
     Dates: start: 20171219, end: 20171227
  2. OLANZAPINE [Suspect]
     Active Substance: OLANZAPINE
     Indication: Psychiatric decompensation
     Route: 048
     Dates: start: 20171220, end: 20171227
  3. VALPROATE SODIUM [Suspect]
     Active Substance: VALPROATE SODIUM
     Indication: Psychiatric decompensation
     Route: 048
     Dates: start: 20171220, end: 20171223
  4. ARIPIPRAZOLE [Suspect]
     Active Substance: ARIPIPRAZOLE
     Indication: Psychiatric decompensation
     Dosage: 1 DF
     Route: 030
     Dates: start: 20171206, end: 20171206
  5. ZOLPIDEM TARTRATE [Suspect]
     Active Substance: ZOLPIDEM TARTRATE
     Indication: Psychiatric decompensation
     Route: 048
     Dates: start: 20171219, end: 20171227
  6. FLUPENTIXOL DIHYDROCHLORIDE [Suspect]
     Active Substance: FLUPENTIXOL DIHYDROCHLORIDE
     Indication: Psychiatric decompensation
     Route: 048
     Dates: start: 20171219, end: 20171227
  7. VALIUM [Suspect]
     Active Substance: DIAZEPAM
     Indication: Psychiatric decompensation
     Route: 048
     Dates: start: 20171219, end: 20171227
  8. IMODIUM [Concomitant]
     Active Substance: LOPERAMIDE HYDROCHLORIDE
     Dosage: 2 DF, QD
     Route: 048
     Dates: start: 20171220, end: 20171220
  9. SPREGAL [Concomitant]
     Active Substance: PIPERONYL BUTOXIDE\S-BIOALLETHRIN
     Dosage: 1 DF
     Route: 003
     Dates: start: 20171219, end: 20171219
  10. ASCABIOL [BENZYL BENZOATE] [Concomitant]
     Dosage: 1 DF
     Route: 003
     Dates: start: 20171219, end: 20171219
  11. LOXAPINE SUCCINATE [Concomitant]
     Active Substance: LOXAPINE SUCCINATE
     Dosage: 4 DF
     Route: 030
     Dates: start: 20171219, end: 20171219

REACTIONS (1)
  - Cardio-respiratory arrest [Fatal]
